FAERS Safety Report 15976720 (Version 2)
Quarter: 2020Q3

REPORT INFORMATION
  Report Type: Report from Study
  Country: US (occurrence: US)
  Receive Date: 20190218
  Receipt Date: 20200805
  Transmission Date: 20201102
  Serious: Yes (Hospitalization)
  Sender: FDA-Public Use
  Company Number: US-SA-2019SA041647

PATIENT

DRUGS (3)
  1. INSULIN GLARGINE [Suspect]
     Active Substance: INSULIN GLARGINE
     Indication: TYPE 2 DIABETES MELLITUS
     Dosage: 74 IU, QD
     Route: 058
     Dates: start: 2010
  2. INSULIN GLARGINE [Suspect]
     Active Substance: INSULIN GLARGINE
     Indication: DIABETIC COMPLICATION
     Dosage: 72?74 IU, QD
     Route: 058
  3. ADMELOG [Concomitant]
     Active Substance: INSULIN LISPRO
     Dosage: 12?14 IU, TID

REACTIONS (6)
  - Carpal tunnel decompression [Recovered/Resolved]
  - Spinal operation [Recovered/Resolved]
  - Injection site bruising [Unknown]
  - Intentional product misuse [Unknown]
  - Product administered at inappropriate site [Unknown]
  - Hip arthroplasty [Recovered/Resolved]

NARRATIVE: CASE EVENT DATE: 2017
